FAERS Safety Report 4572682-5 (Version None)
Quarter: 2005Q1

REPORT INFORMATION
  Report Type: 
  Country: None (occurrence: None)
  Receive Date: 20050208
  Receipt Date: 20041123
  Transmission Date: 20050727
  Serious: No
  Sender: FDA-Public Use
  Company Number: US-GLAXOSMITHKLINE-A0535016A

PATIENT
  Age: 61 Year
  Sex: Female

DRUGS (3)
  1. PAXIL CR [Suspect]
     Indication: OBSESSIVE-COMPULSIVE DISORDER
     Dosage: 62.5MG PER DAY
     Route: 048
     Dates: start: 20041101
  2. ANAFRANIL [Concomitant]
     Route: 065
  3. LORAZEPAM [Concomitant]

REACTIONS (1)
  - TREMOR [None]
